FAERS Safety Report 11789899 (Version 1)
Quarter: 2015Q4

REPORT INFORMATION
  Report Type: Spontaneous
  Country: US (occurrence: None)
  Receive Date: 20151130
  Receipt Date: 20151130
  Transmission Date: 20160305
  Serious: Yes (Hospitalization, Disabling)
  Sender: FDA-Public Use
  Company Number: None

PATIENT
  Age: 47 Year
  Sex: Female
  Weight: 63.5 kg

DRUGS (1)
  1. GLATOPA [Suspect]
     Active Substance: GLATIRAMER ACETATE
     Indication: MULTIPLE SCLEROSIS
     Route: 058
     Dates: start: 20151013, end: 20151110

REACTIONS (6)
  - Fatigue [None]
  - Headache [None]
  - Product substitution issue [None]
  - Nausea [None]
  - Dizziness [None]
  - Eye pain [None]

NARRATIVE: CASE EVENT DATE: 20151015
